FAERS Safety Report 8467418-1 (Version None)
Quarter: 2012Q2

REPORT INFORMATION
  Report Type: 
  Country: None (occurrence: None)
  Receive Date: 20120620
  Receipt Date: 20120606
  Transmission Date: 20120825
  Serious: Yes (Hospitalization, Other)
  Sender: FDA-Public Use
  Company Number: 2012AP000326

PATIENT
  Age: 71 Year
  Sex: Female

DRUGS (2)
  1. AMLODIPINE BESYLATE [Suspect]
     Indication: HYPERTENSION
     Dosage: 5 MG;
  2. ENALAPRIL MALEATE [Suspect]
     Indication: HYPERTENSION

REACTIONS (7)
  - HYPOTENSION [None]
  - SKIN TOXICITY [None]
  - TOXIC EPIDERMAL NECROLYSIS [None]
  - PROTEINURIA [None]
  - RENAL IMPAIRMENT [None]
  - HYPERKALAEMIA [None]
  - BLISTER [None]
